FAERS Safety Report 9531008 (Version 1)
Quarter: 2013Q2

REPORT INFORMATION
  Report Type: Spontaneous
  Country: US (occurrence: None)
  Receive Date: 20130429
  Receipt Date: 20130429
  Transmission Date: 20140414
  Serious: Yes (Hospitalization)
  Sender: FDA-Public Use
  Company Number: JPI-P-025661

PATIENT
  Age: 16 Year
  Sex: Male

DRUGS (2)
  1. LUVOX CR [Suspect]
     Indication: PRODUCT USED FOR UNKNOWN INDICATION
     Route: 048
     Dates: start: 20120822
  2. QUETIAPINE [Concomitant]

REACTIONS (1)
  - Suicide attempt [None]
